FAERS Safety Report 6729928-4 (Version None)
Quarter: 2010Q2

REPORT INFORMATION
  Report Type: 
  Country: None (occurrence: None)
  Receive Date: 20100512
  Receipt Date: 20100324
  Transmission Date: 20101027
  Serious: Yes (Other)
  Sender: FDA-Public Use
  Company Number: 1000012696

PATIENT
  Age: 35 Year
  Sex: Female

DRUGS (1)
  1. SAVELLA [Suspect]

REACTIONS (3)
  - HEADACHE [None]
  - HOT FLUSH [None]
  - HYPERTENSIVE CRISIS [None]
